FAERS Safety Report 18397042 (Version 1)
Quarter: 2020Q4

REPORT INFORMATION
  Report Type: Spontaneous
  Country: US (occurrence: US)
  Receive Date: 20201016
  Receipt Date: 20201016
  Transmission Date: 20210114
  Serious: Yes (Other)
  Sender: FDA-Public Use
  Company Number: None

PATIENT
  Age: 25 Year
  Weight: 61.65 kg

DRUGS (6)
  1. ALLERGY RELIEF (CETIRIZINE HYDROCHLORIDE) [Suspect]
     Active Substance: CETIRIZINE HYDROCHLORIDE
     Indication: URTICARIA CHRONIC
     Dosage: ?          QUANTITY:1 TABLET(S);?
     Route: 048
     Dates: start: 20200915, end: 20200921
  2. CDB [Concomitant]
  3. VITAMIN D [Concomitant]
     Active Substance: VITAMIN D NOS
  4. LORATADINE. [Concomitant]
     Active Substance: LORATADINE
  5. FLUOXETINE HCL 20MG [Suspect]
     Active Substance: FLUOXETINE HYDROCHLORIDE
     Indication: POST-TRAUMATIC STRESS DISORDER
     Dosage: ?          QUANTITY:1 CAPSULE(S);?
     Route: 048
  6. ALLERGY RELIEF (CETIRIZINE HYDROCHLORIDE) [Suspect]
     Active Substance: CETIRIZINE HYDROCHLORIDE
     Indication: SEASONAL ALLERGY
     Dosage: ?          QUANTITY:1 TABLET(S);?
     Route: 048
     Dates: start: 20200915, end: 20200921

REACTIONS (13)
  - Malaise [None]
  - Tremor [None]
  - Dizziness [None]
  - Mood swings [None]
  - Illness [None]
  - Self-injurious ideation [None]
  - Headache [None]
  - Nausea [None]
  - Pain [None]
  - Gastric disorder [None]
  - Feeling of body temperature change [None]
  - Disturbance in attention [None]
  - Serotonin syndrome [None]

NARRATIVE: CASE EVENT DATE: 20200930
